FAERS Safety Report 11367503 (Version 1)
Quarter: 2015Q3

REPORT INFORMATION
  Report Type: Spontaneous
  Country: US (occurrence: US)
  Receive Date: 20150811
  Receipt Date: 20150811
  Transmission Date: 20151125
  Serious: No
  Sender: FDA-Public Use
  Company Number: US-ELI_LILLY_AND_COMPANY-US201110006887

PATIENT
  Age: 47 Year
  Sex: Male
  Weight: 99.77 kg

DRUGS (7)
  1. BUSPIRONE [Concomitant]
     Active Substance: BUSPIRONE HYDROCHLORIDE
  2. LEXAPRO [Concomitant]
     Active Substance: ESCITALOPRAM OXALATE
  3. TRAZODONE [Concomitant]
     Active Substance: TRAZODONE HYDROCHLORIDE
  4. ABILIFY [Concomitant]
     Active Substance: ARIPIPRAZOLE
  5. XANAX [Concomitant]
     Active Substance: ALPRAZOLAM
  6. AXIRON [Suspect]
     Active Substance: TESTOSTERONE
     Indication: HYPOGONADISM MALE
     Dosage: 60 MG, QD (30MG EACH ARMPIT)
     Route: 061
     Dates: start: 20111017, end: 20120111
  7. ACIPHEX [Concomitant]
     Active Substance: RABEPRAZOLE SODIUM

REACTIONS (3)
  - Weight increased [Recovered/Resolved]
  - Blood testosterone decreased [Recovered/Resolved]
  - Chapped lips [Unknown]

NARRATIVE: CASE EVENT DATE: 20111023
